FAERS Safety Report 11905066 (Version 2)
Quarter: 2019Q1

REPORT INFORMATION
  Report Type: Spontaneous
  Country: US (occurrence: US)
  Receive Date: 20160109
  Receipt Date: 20190314
  Transmission Date: 20190417
  Serious: Yes (Other)
  Sender: FDA-Public Use
  Company Number: US-JNJFOC-20151210769

PATIENT
  Sex: Male

DRUGS (1)
  1. RISPERDAL [Suspect]
     Active Substance: RISPERIDONE
     Indication: PSYCHOTHERAPY
     Route: 048
     Dates: start: 200203, end: 2003

REACTIONS (2)
  - Gynaecomastia [Recovering/Resolving]
  - Abnormal weight gain [Unknown]

NARRATIVE: CASE EVENT DATE: 2002
